FAERS Safety Report 6922658-5 (Version None)
Quarter: 2010Q3

REPORT INFORMATION
  Report Type: 
  Country: None (occurrence: None)
  Receive Date: 20100813
  Receipt Date: 20100802
  Transmission Date: 20110219
  Serious: Yes (Other)
  Sender: FDA-Public Use
  Company Number: PHHY2010BR51343

PATIENT
  Sex: Male

DRUGS (2)
  1. DIOVAN TRIPLE [Suspect]
     Dosage: 1 DF, DAILY (160/5/12.5 MG)
  2. DIOVAN TRIPLE [Suspect]
     Dosage: UNK, (160/10/12.5 MG)

REACTIONS (2)
  - HYPERTENSION [None]
  - KNEE OPERATION [None]
